FAERS Safety Report 11921528 (Version 1)
Quarter: 2016Q1

REPORT INFORMATION
  Report Type: Report from Study
  Country: US (occurrence: US)
  Receive Date: 20160115
  Receipt Date: 20160115
  Transmission Date: 20160526
  Serious: No
  Sender: FDA-Public Use
  Company Number: US-009507513-2009SP007726

PATIENT
  Sex: Female

DRUGS (2)
  1. MK-8908 [Suspect]
     Active Substance: INVESTIGATIONAL PRODUCT
     Indication: HEPATITIS C
     Route: 048
     Dates: end: 20090228
  2. PEGINTRON [Suspect]
     Active Substance: PEGINTERFERON ALFA-2B
     Indication: HEPATITIS C
     Dates: end: 20090228

REACTIONS (2)
  - Exposure during pregnancy [Unknown]
  - No adverse event [Unknown]
